FAERS Safety Report 5075009-8 (Version None)
Quarter: 2006Q3

REPORT INFORMATION
  Report Type: 
  Country: None (occurrence: None)
  Receive Date: 20060807
  Receipt Date: 20060807
  Transmission Date: 20061208
  Serious: Yes (Life-Threatening, Hospitalization)
  Sender: FDA-Public Use
  Company Number: None

PATIENT
  Age: 46 Year
  Sex: Male
  Weight: 72 kg

DRUGS (12)
  1. IRESSA [Suspect]
     Indication: NON-SMALL CELL LUNG CANCER
     Dosage: 750MG PO AND 500MG PO
     Route: 048
     Dates: start: 20060524, end: 20060715
  2. COLACE [Concomitant]
  3. DECADRON [Concomitant]
  4. KAPPRA [Concomitant]
  5. LOPERAMIDE [Concomitant]
  6. OMEPRAZOLE [Concomitant]
  7. OXYCODONE HCL [Concomitant]
  8. OXYCONTIN [Concomitant]
  9. ROBITUSSIN WITH CODEINE [Concomitant]
  10. SIMETHACONE [Concomitant]
  11. AMBIEN [Concomitant]
  12. ATIVAN [Concomitant]

REACTIONS (4)
  - ARTHRALGIA [None]
  - OEDEMA PERIPHERAL [None]
  - PAIN IN EXTREMITY [None]
  - PULMONARY EMBOLISM [None]
